FAERS Safety Report 9644785 (Version 1)
Quarter: 2013Q4

REPORT INFORMATION
  Report Type: Spontaneous
  Country: US (occurrence: None)
  Receive Date: 20131023
  Receipt Date: 20131023
  Transmission Date: 20140711
  Serious: Yes (Disabling)
  Sender: FDA-Public Use
  Company Number: None

PATIENT
  Age: 37 Year
  Sex: Female
  Weight: 77.11 kg

DRUGS (1)
  1. LUPRON DEPOT [Suspect]
     Indication: ENDOMETRIOSIS
     Dosage: 7.5 MG INJ EVERY OTHER MONTY INTO THE MUSCLE

REACTIONS (10)
  - Bone pain [None]
  - Arthralgia [None]
  - Fatigue [None]
  - Burnout syndrome [None]
  - Confusional state [None]
  - Dyspnoea [None]
  - Palpitations [None]
  - Arthralgia [None]
  - Gait disturbance [None]
  - Quality of life decreased [None]
